FAERS Safety Report 4353333-1 (Version None)
Quarter: 2004Q2

REPORT INFORMATION
  Report Type: 
  Country: None (occurrence: None)
  Receive Date: 20040429
  Receipt Date: 20040420
  Transmission Date: 20050107
  Serious: Yes (Hospitalization)
  Sender: FDA-Public Use
  Company Number: US073525

PATIENT
  Age: 21 Year
  Sex: Female

DRUGS (7)
  1. EPOGEN [Suspect]
     Indication: PRE-EXISTING DISEASE
     Dosage: 40000 IU, SC
     Route: 058
     Dates: start: 20040329
  2. INTERFERON ALFACON-1 [Suspect]
     Dosage: 15 MU, 3 IN 1 WEEKS, SC
     Route: 058
     Dates: start: 20031105
  3. RIBAVIRIN [Suspect]
     Dosage: 1000 MG, 1 IN 1 DAYS, PO
     Route: 048
     Dates: start: 20031105, end: 20040117
  4. ONDANSETRON HCL [Concomitant]
  5. FOLIC ACID [Concomitant]
  6. TOCOPHEROL CONCENTRATE CAP [Concomitant]
  7. SERTRALINE HYDROCHLORIDE [Concomitant]

REACTIONS (5)
  - ANAEMIA [None]
  - ASTHENIA [None]
  - BLOOD POTASSIUM DECREASED [None]
  - DIZZINESS [None]
  - TREMOR [None]
